FAERS Safety Report 13662745 (Version 2)
Quarter: 2017Q2

REPORT INFORMATION
  Report Type: Report from Study
  Country: CO (occurrence: CO)
  Receive Date: 20170618
  Receipt Date: 20170629
  Transmission Date: 20170830
  Serious: Yes (Death, Hospitalization, Other)
  Sender: FDA-Public Use
  Company Number: CO-BRISTOL-MYERS SQUIBB COMPANY-BMS-2017-042360

PATIENT
  Age: 61 Year
  Sex: Male

DRUGS (2)
  1. NIVOLUMAB [Suspect]
     Active Substance: NIVOLUMAB
     Indication: LUNG NEOPLASM MALIGNANT
     Route: 065
  2. NIVOLUMAB [Suspect]
     Active Substance: NIVOLUMAB
     Indication: RENAL CANCER
     Dosage: 220 MG, EVERY 15 DAYS
     Route: 042
     Dates: start: 20170502

REACTIONS (18)
  - Amnesia [Recovering/Resolving]
  - Adverse event [Recovering/Resolving]
  - Chest pain [Recovered/Resolved]
  - Affect lability [Recovering/Resolving]
  - Sense of oppression [Recovering/Resolving]
  - Decreased appetite [Recovering/Resolving]
  - Pain in extremity [Recovering/Resolving]
  - Vomiting [Recovering/Resolving]
  - Chills [Recovered/Resolved]
  - Pain [Recovering/Resolving]
  - Death [Fatal]
  - Seizure [Recovering/Resolving]
  - Headache [Recovering/Resolving]
  - Asthenia [Recovering/Resolving]
  - Aggression [Recovering/Resolving]
  - Anxiety [Recovering/Resolving]
  - Disorientation [Recovering/Resolving]
  - Erythema [Recovering/Resolving]

NARRATIVE: CASE EVENT DATE: 20170504
